FAERS Safety Report 7526023-1 (Version None)
Quarter: 2011Q2

REPORT INFORMATION
  Report Type: 
  Country: None (occurrence: None)
  Receive Date: 20110606
  Receipt Date: 20110526
  Transmission Date: 20111010
  Serious: Yes (Hospitalization, Other)
  Sender: FDA-Public Use
  Company Number: US-ASTRAZENECA-2011SE22047

PATIENT
  Age: 72 Year
  Sex: Female

DRUGS (3)
  1. SEROQUEL [Suspect]
     Route: 048
  2. ARIMIDEX [Suspect]
     Route: 048
  3. NEXIUM [Suspect]
     Route: 048

REACTIONS (13)
  - NEOPLASM MALIGNANT [None]
  - WEIGHT DECREASED [None]
  - HYPOAESTHESIA [None]
  - SURGERY [None]
  - MASTECTOMY [None]
  - BREAST CANCER [None]
  - ARTHRITIS [None]
  - SUICIDAL IDEATION [None]
  - MALIGNANT BREAST LUMP REMOVAL [None]
  - LYMPHOMA [None]
  - SLEEP APNOEA SYNDROME [None]
  - COLONOSCOPY [None]
  - HYSTERECTOMY [None]
